FAERS Safety Report 20210471 (Version 1)
Quarter: 2021Q4

REPORT INFORMATION
  Report Type: Spontaneous
  Country: NL (occurrence: NL)
  Receive Date: 20211221
  Receipt Date: 20211221
  Transmission Date: 20220303
  Serious: Yes (Other)
  Sender: FDA-Public Use
  Company Number: None

PATIENT
  Age: 41 Year
  Sex: Female
  Weight: 85 kg

DRUGS (7)
  1. METHOTREXATE [Suspect]
     Active Substance: METHOTREXATE
     Indication: Psoriatic arthropathy
     Dosage: 1X A WEEK 10 PIECES , UNIT DOSE : 25 MG
     Dates: start: 202009, end: 20211130
  2. PREDNISONE [Concomitant]
     Active Substance: PREDNISONE
     Dosage: 5 MG (MILLIGRAM) , THERAPY START DATE AND END DATE : ASKU
  3. ADALIMUMAB/ HUMIRA [Concomitant]
     Dosage: 100 MG/ML (MILLIGRAM PER MILLILITER) , THERAPY START DATE AND END DATE : ASKU
  4. ESCITALOPRAM / LEXAPRO [Concomitant]
     Dosage: 10 MG (MILLIGRAM) ,THERAPY START DATE AND END DATE : ASKU
  5. ETORICOXIB/ ARCOXIA [Concomitant]
     Dosage: 60 MG (MILLIGRAM) , THERAPY START DATE AND END DATE : ASKU
  6. OMEPRAZOLE [Concomitant]
     Active Substance: OMEPRAZOLE
     Dosage: 20 MG (MILLIGRAM) , THERAPY START DATE AND END DATE : ASKU , OMEPRAZOL CAPSULE MSR
  7. ALPRAZOLAM [Concomitant]
     Active Substance: ALPRAZOLAM
     Dosage: 0.5 MG (MILLIGRAM) , THERAPY START DATE AND END DATE : ASKU , ALPRAZOLAM TABLET MGA

REACTIONS (4)
  - Suicidal ideation [Recovering/Resolving]
  - Fatigue [Recovering/Resolving]
  - Dizziness [Recovering/Resolving]
  - Depressed mood [Recovering/Resolving]

NARRATIVE: CASE EVENT DATE: 20210401
